FAERS Safety Report 10026308 (Version 1)
Quarter: 2014Q1

REPORT INFORMATION
  Report Type: Spontaneous
  Country: MM (occurrence: MM)
  Receive Date: 20140321
  Receipt Date: 20140321
  Transmission Date: 20141002
  Serious: Yes (Death)
  Sender: FDA-Public Use
  Company Number: MM-ROCHE-1367122

PATIENT
  Age: 72 Year
  Sex: Female

DRUGS (2)
  1. PEGASYS [Suspect]
     Indication: HEPATITIS C
     Route: 058
     Dates: start: 20131209, end: 20140309
  2. RECORMON [Concomitant]
     Indication: ANAEMIA
     Route: 058

REACTIONS (4)
  - Constipation [Fatal]
  - Pyrexia [Fatal]
  - Abdominal distension [Fatal]
  - Confusional state [Fatal]
